FAERS Safety Report 5608951-7 (Version None)
Quarter: 2008Q1

REPORT INFORMATION
  Report Type: 
  Country: None (occurrence: None)
  Receive Date: 20080129
  Receipt Date: 20080129
  Transmission Date: 20080703
  Serious: Yes (Life-Threatening, Hospitalization, Disabling, Other)
  Sender: FDA-Public Use
  Company Number: None

PATIENT
  Sex: Female
  Weight: 70.3075 kg

DRUGS (1)
  1. LAMICTAL [Suspect]
     Indication: BIPOLAR DISORDER
     Dosage: STARTED AT 25MG A DAY   I WAS AT 200-300MG A DAY BY 1/19
     Dates: start: 20051120, end: 20060117

REACTIONS (14)
  - ABDOMINAL ADHESIONS [None]
  - ALOPECIA [None]
  - BALANCE DISORDER [None]
  - BLOOD DISORDER [None]
  - DEPRESSION [None]
  - DRUG HYPERSENSITIVITY [None]
  - FIBROMYALGIA [None]
  - GAIT DISTURBANCE [None]
  - IMMUNE SYSTEM DISORDER [None]
  - INTESTINAL OBSTRUCTION [None]
  - RESPIRATORY ARREST [None]
  - SCAR [None]
  - SPEECH DISORDER [None]
  - SYSTEMIC LUPUS ERYTHEMATOSUS [None]
